FAERS Safety Report 15060790 (Version 2)
Quarter: 2018Q3

REPORT INFORMATION
  Report Type: Spontaneous
  Country: None (occurrence: US)
  Receive Date: 20180625
  Receipt Date: 20180626
  Transmission Date: 20181010
  Serious: Yes (Hospitalization)
  Sender: FDA-Public Use
  Company Number: US-CHURCH + DWIGHT CO., INC.-2049898

PATIENT
  Sex: Female

DRUGS (1)
  1. VIVISCAL EXTRA STRENGTH DIETARY SUPPLEMENT 180CT [Suspect]
     Active Substance: DIETARY SUPPLEMENT
     Route: 048
     Dates: start: 20180519, end: 20180521

REACTIONS (2)
  - Swollen tongue [None]
  - Swelling face [Recovered/Resolved]

NARRATIVE: CASE EVENT DATE: 20180519
